FAERS Safety Report 4972872-3 (Version None)
Quarter: 2006Q2

REPORT INFORMATION
  Report Type: 
  Country: None (occurrence: None)
  Receive Date: 20060410
  Receipt Date: 20060331
  Transmission Date: 20061013
  Serious: Yes (Death)
  Sender: FDA-Public Use
  Company Number: 6021189

PATIENT
  Age: 6 Year
  Sex: Male
  Weight: 28.5766 kg

DRUGS (4)
  1. LORATADINE [Suspect]
     Dosage: 10,000 MG, 1 IN 1 D, ORAL
     Route: 048
  2. ALLERGY INJECTIONS (INJECTION) [Suspect]
     Indication: HYPERSENSITIVITY
  3. PIN-X [Concomitant]
  4. VITAMINS [Concomitant]

REACTIONS (3)
  - DRUG LEVEL INCREASED [None]
  - HYPOMETABOLISM [None]
  - VOMITING [None]
